FAERS Safety Report 23671227 (Version 1)
Quarter: 2024Q1

REPORT INFORMATION
  Report Type: Spontaneous
  Country: IL (occurrence: IL)
  Receive Date: 20240326
  Receipt Date: 20240326
  Transmission Date: 20240410
  Serious: Yes (Other)
  Sender: FDA-Public Use
  Company Number: IL-TEVA-VS-3147672

PATIENT
  Age: 65 Year
  Sex: Male

DRUGS (1)
  1. AMLODIPINE [Suspect]
     Active Substance: AMLODIPINE BESYLATE
     Dosage: DOSAGE 1
     Route: 065
     Dates: start: 20230101

REACTIONS (4)
  - Erectile dysfunction [Unknown]
  - Oedema [Unknown]
  - Nocturia [Unknown]
  - Joint swelling [Unknown]
